FAERS Safety Report 22260987 (Version 2)
Quarter: 2023Q2

REPORT INFORMATION
  Report Type: Report from Study
  Country: CA (occurrence: CA)
  Receive Date: 20230427
  Receipt Date: 20230518
  Transmission Date: 20230721
  Serious: Yes (Other)
  Sender: FDA-Public Use
  Company Number: CA-002147023-NVSC2022CA238783

PATIENT
  Age: 71 Year
  Sex: Female

DRUGS (1)
  1. HYRIMOZ [Suspect]
     Active Substance: ADALIMUMAB-ADAZ
     Indication: Crohn^s disease
     Dosage: 40 MG, QW
     Route: 058
     Dates: start: 20220202

REACTIONS (3)
  - Crohn^s disease [Unknown]
  - Diarrhoea [Unknown]
  - Faeces soft [Unknown]

NARRATIVE: CASE EVENT DATE: 20221020
